FAERS Safety Report 15150267 (Version 1)
Quarter: 2018Q3

REPORT INFORMATION
  Report Type: Spontaneous
  Country: DE (occurrence: DE)
  Receive Date: 20180716
  Receipt Date: 20180716
  Transmission Date: 20181010
  Serious: Yes (Other)
  Sender: FDA-Public Use
  Company Number: DE-US WORLDMEDS, LLC-STA_00017422

PATIENT
  Sex: Female
  Weight: 57 kg

DRUGS (7)
  1. APOMORPHINE HYDROCHLORIDE [Suspect]
     Active Substance: APOMORPHINE HYDROCHLORIDE
     Indication: PARKINSON^S DISEASE
     Dosage: NO BOLUS
     Route: 058
     Dates: start: 201505
  2. PANTOPRAZOLE [Concomitant]
     Active Substance: PANTOPRAZOLE
  3. SPIRONOLACTONE 50 [Concomitant]
  4. CELL CEPT 250 [Concomitant]
  5. CELL CEPT 500 [Concomitant]
  6. FUROSEMIDE 40 [Concomitant]
  7. LEVOTHYROXINE 100 [Concomitant]

REACTIONS (3)
  - Injection site necrosis [Recovering/Resolving]
  - Injection site haematoma [Not Recovered/Not Resolved]
  - Injection site nodule [Not Recovered/Not Resolved]
